FAERS Safety Report 9524108 (Version 1)
Quarter: 2013Q3

REPORT INFORMATION
  Report Type: Spontaneous
  Country: SE (occurrence: None)
  Receive Date: 20130912
  Receipt Date: 20130912
  Transmission Date: 20140515
  Serious: Yes (Life-Threatening)
  Sender: FDA-Public Use
  Company Number: SE-LHC-2013039

PATIENT
  Age: 37 Year
  Sex: Male

DRUGS (1)
  1. OXYGEN [Suspect]
     Indication: PRODUCT USED FOR UNKNOWN INDICATION
     Route: 055
     Dates: start: 20130710, end: 20130710

REACTIONS (3)
  - Abnormal behaviour [None]
  - Hypercapnia [None]
  - Coma [None]
